FAERS Safety Report 4349624-0 (Version None)
Quarter: 2004Q1

REPORT INFORMATION
  Report Type: 
  Country: None (occurrence: None)
  Receive Date: 20040329
  Receipt Date: 20040209
  Transmission Date: 20041129
  Serious: No
  Sender: FDA-Public Use
  Company Number: 000772

PATIENT
  Age: 70 Year
  Sex: Female
  Weight: 59.4 kg

DRUGS (4)
  1. ZEVALIN [Suspect]
     Indication: NON-HODGKIN'S LYMPHOMA
     Dosage: UNK, SINGLE, RITUXAN DOSE 1, INTRAVENOUS SEE IMAGE
     Route: 042
     Dates: start: 20021001, end: 20021001
  2. ZEVALIN [Suspect]
     Indication: NON-HODGKIN'S LYMPHOMA
     Dosage: UNK, SINGLE, RITUXAN DOSE 1, INTRAVENOUS SEE IMAGE
     Route: 042
     Dates: start: 20021001, end: 20021001
  3. ZEVALIN [Suspect]
     Indication: NON-HODGKIN'S LYMPHOMA
     Dosage: UNK, SINGLE, RITUXAN DOSE 1, INTRAVENOUS SEE IMAGE
     Route: 042
     Dates: start: 20021001, end: 20021001
  4. ZEVALIN [Suspect]
     Indication: NON-HODGKIN'S LYMPHOMA
     Dosage: UNK, SINGLE, RITUXAN DOSE 1, INTRAVENOUS SEE IMAGE
     Route: 042
     Dates: start: 20021001, end: 20021001

REACTIONS (1)
  - DISEASE PROGRESSION [None]
